FAERS Safety Report 9830029 (Version 1)
Quarter: 2014Q1

REPORT INFORMATION
  Report Type: Spontaneous
  Country: US (occurrence: US)
  Receive Date: 20140120
  Receipt Date: 20140120
  Transmission Date: 20141002
  Serious: No
  Sender: FDA-Public Use
  Company Number: US-009507513-1401USA006557

PATIENT
  Age: 27 Year
  Sex: Male

DRUGS (4)
  1. REMERON [Suspect]
     Indication: DEPRESSION
     Dosage: 30 MG, HS
     Route: 048
     Dates: start: 20131031, end: 201311
  2. REMERON [Suspect]
     Indication: ANXIETY
     Dosage: 45 MG, HS
     Route: 048
     Dates: start: 20131121
  3. REMERON [Suspect]
     Indication: INSOMNIA
     Dosage: 15 MG, HS
     Route: 048
     Dates: start: 20131025, end: 201310
  4. ZANTAC [Concomitant]
     Indication: DYSPEPSIA

REACTIONS (1)
  - Oedema peripheral [Not Recovered/Not Resolved]
